FAERS Safety Report 23082967 (Version 1)
Quarter: 2023Q4

REPORT INFORMATION
  Report Type: Other
  Country: NO (occurrence: NO)
  Receive Date: 20231019
  Receipt Date: 20231019
  Transmission Date: 20240110
  Serious: Yes (Life-Threatening, Hospitalization, Other)
  Sender: FDA-Public Use
  Company Number: None

PATIENT
  Age: 63 Year
  Sex: Female

DRUGS (13)
  1. ATENOLOL [Interacting]
     Active Substance: ATENOLOL
     Indication: Product used for unknown indication
     Dosage: 50 MILLIGRAM, QD, 50 MG, 1X/DAY
     Route: 065
  2. FELODIPINE [Interacting]
     Active Substance: FELODIPINE
     Indication: Product used for unknown indication
     Dosage: 10 MILLIGRAM, QD, TABLET ER
     Route: 048
  3. HYDROCHLOROTHIAZIDE\TELMISARTAN [Interacting]
     Active Substance: HYDROCHLOROTHIAZIDE\TELMISARTAN
     Indication: Product used for unknown indication
     Dosage: 12.5/80 MG, 1X/DAY, QD
     Route: 065
  4. ERYTHROMYCIN [Suspect]
     Active Substance: ERYTHROMYCIN
     Indication: Respiratory tract infection
     Dosage: 500 MILLIGRAM, TID, 500 MG, 3X/DAY
     Route: 065
  5. ERYTHROMYCIN [Suspect]
     Active Substance: ERYTHROMYCIN
     Dosage: UNK
     Route: 065
  6. GLUCOPHAGE [Interacting]
     Active Substance: METFORMIN HYDROCHLORIDE
     Indication: Product used for unknown indication
     Dosage: 1000 MILLIGRAM, BID
     Route: 065
  7. NEURONTIN [Suspect]
     Active Substance: GABAPENTIN
     Indication: Product used for unknown indication
     Dosage: 600 MILLIGRAM, TID
     Route: 065
  8. ASPIRIN\MAGNESIUM OXIDE [Suspect]
     Active Substance: ASPIRIN\MAGNESIUM OXIDE
     Indication: Product used for unknown indication
     Dosage: 75 MILLIGRAM, QD
     Route: 065
  9. WARFARIN SODIUM [Suspect]
     Active Substance: WARFARIN SODIUM
     Indication: Product used for unknown indication
     Dosage: 2.5 MG AFTER LIST
     Route: 065
  10. ISOPHANE INSULIN [Interacting]
     Active Substance: INSULIN NOS
     Indication: Product used for unknown indication
     Dosage: UNK
     Route: 065
  11. ISOPHANE INSULIN [Interacting]
     Active Substance: INSULIN NOS
     Dosage: 18 + 16 IU
     Route: 065
  12. SIMVASTATIN [Suspect]
     Active Substance: SIMVASTATIN
     Indication: Product used for unknown indication
     Dosage: 20 MILLIGRAM, QD
     Route: 065
  13. COUMADIN [Concomitant]
     Active Substance: WARFARIN SODIUM
     Indication: Product used for unknown indication
     Dosage: 2.5 MG AFTER LIST
     Route: 065

REACTIONS (9)
  - Hyperkalaemia [Not Recovered/Not Resolved]
  - Hypothermia [Recovered/Resolved]
  - Lactic acidosis [Recovered/Resolved]
  - Drug interaction [Recovered/Resolved]
  - Metabolic acidosis [Recovered/Resolved]
  - Hypoglycaemia [Recovered/Resolved]
  - Acute kidney injury [Recovered/Resolved]
  - Sinus bradycardia [Recovered/Resolved]
  - Hypotension [Recovered/Resolved]
